FAERS Safety Report 13091850 (Version 1)
Quarter: 2017Q1

REPORT INFORMATION
  Report Type: Spontaneous
  Country: US (occurrence: US)
  Receive Date: 20170104
  Receipt Date: 20170104
  Transmission Date: 20170428
  Serious: No
  Sender: FDA-Public Use
  Company Number: None

PATIENT
  Sex: Female

DRUGS (1)
  1. HUMIRA [Suspect]
     Active Substance: ADALIMUMAB
     Indication: MALAISE
     Route: 058
     Dates: start: 201603

REACTIONS (5)
  - Vision blurred [None]
  - Dyspnoea [None]
  - Respiratory disorder [None]
  - Eye disorder [None]
  - Condition aggravated [None]
